FAERS Safety Report 16368053 (Version 1)
Quarter: 2019Q2

REPORT INFORMATION
  Report Type: Spontaneous
  Country: ES (occurrence: ES)
  Receive Date: 20190529
  Receipt Date: 20190529
  Transmission Date: 20190711
  Serious: Yes (Hospitalization)
  Sender: FDA-Public Use
  Company Number: ES-TEVA-2019-ES-1056003

PATIENT
  Age: 80 Year
  Sex: Female

DRUGS (4)
  1. MIRTAZAPINA (2704A) [Suspect]
     Active Substance: MIRTAZAPINE
     Indication: DEPRESSION
     Dosage: 15 MILLIGRAM DAILY;
     Route: 048
     Dates: start: 20170406
  2. PREGABALINA (3897A) [Suspect]
     Active Substance: PREGABALIN
     Indication: DEPRESSION
     Dosage: 175 MILLIGRAM DAILY; 100MG-75MG-0
     Route: 048
     Dates: start: 20170406, end: 20180402
  3. FLUVOXAMINA (159A) [Suspect]
     Active Substance: FLUVOXAMINE
     Indication: DEPRESSION
     Dosage: 150 MILLIGRAM DAILY; 150 MG NIGHT
     Route: 048
     Dates: start: 20170406
  4. SINTONAL 0,25 MG COMPRIMIDOS , 20 COMPRIMIDOS [Suspect]
     Active Substance: BROTIZOLAM
     Indication: DEPRESSION
     Dosage: .25 MILLIGRAM DAILY; 0-0-1
     Route: 048
     Dates: start: 20170406, end: 20180402

REACTIONS (3)
  - Fall [Recovered/Resolved]
  - Syncope [Recovered/Resolved]
  - Rhabdomyolysis [Recovered/Resolved]

NARRATIVE: CASE EVENT DATE: 20180320
